FAERS Safety Report 9269081 (Version 1)
Quarter: 2013Q2

REPORT INFORMATION
  Report Type: Spontaneous
  Country: US (occurrence: US)
  Receive Date: 20130503
  Receipt Date: 20130503
  Transmission Date: 20140414
  Serious: No
  Sender: FDA-Public Use
  Company Number: US-009507513-1304USA016814

PATIENT
  Sex: Female

DRUGS (7)
  1. SAPHRIS [Suspect]
     Indication: SCHIZOPHRENIA
     Dosage: 10 MG, BID
     Route: 060
     Dates: start: 201210
  2. SAPHRIS [Suspect]
     Dosage: 30 MG, UNK
     Route: 060
  3. CLOZAPINE [Suspect]
     Dosage: UNK
  4. ZYPREXA [Concomitant]
  5. PRISTIQ [Concomitant]
  6. RISPERDAL [Concomitant]
  7. SEROQUEL [Concomitant]

REACTIONS (6)
  - Urticaria [Recovering/Resolving]
  - Drug ineffective [Unknown]
  - Decreased appetite [Recovering/Resolving]
  - Pyrexia [Recovering/Resolving]
  - Nausea [Recovering/Resolving]
  - Overdose [Unknown]
